FAERS Safety Report 9432382 (Version 1)
Quarter: 2013Q3

REPORT INFORMATION
  Report Type: Spontaneous
  Country: US (occurrence: US)
  Receive Date: 20130731
  Receipt Date: 20130731
  Transmission Date: 20140515
  Serious: Yes (Other)
  Sender: FDA-Public Use
  Company Number: US-ELI_LILLY_AND_COMPANY-US201307007774

PATIENT
  Sex: Female

DRUGS (3)
  1. CYMBALTA [Suspect]
     Indication: DEPRESSION
     Dosage: 90 MG, QD
     Route: 065
     Dates: start: 201207, end: 20130704
  2. CYMBALTA [Suspect]
     Indication: FIBROMYALGIA
  3. CYMBALTA [Suspect]
     Indication: PAIN

REACTIONS (10)
  - Suicide attempt [Unknown]
  - Suicidal ideation [Unknown]
  - Malaise [Unknown]
  - Pain [Unknown]
  - Somnolence [Unknown]
  - Headache [Unknown]
  - Asthenia [Unknown]
  - Fatigue [Unknown]
  - Drug withdrawal syndrome [Unknown]
  - Drug ineffective [Unknown]
